FAERS Safety Report 12872885 (Version 2)
Quarter: 2017Q1

REPORT INFORMATION
  Report Type: Spontaneous
  Country: US (occurrence: US)
  Receive Date: 20161021
  Receipt Date: 20170103
  Transmission Date: 20170428
  Serious: No
  Sender: FDA-Public Use
  Company Number: US-009507513-1609USA010811

PATIENT
  Age: 25 Year
  Sex: Female
  Weight: 78.46 kg

DRUGS (2)
  1. NEXPLANON [Suspect]
     Active Substance: ETONOGESTREL
     Indication: CONTRACEPTION
     Dosage: DOSE/FREQUENCY: 68MG ONE SINGLE ROD/3 YEARS
     Route: 059
     Dates: start: 20160829, end: 20160926
  2. NEXPLANON [Suspect]
     Active Substance: ETONOGESTREL
     Dosage: A NEXPLANON REMOVED AFTER 3 YEARS
     Route: 059
     Dates: end: 20160829

REACTIONS (5)
  - Complication associated with device [Recovered/Resolved]
  - Musculoskeletal pain [Unknown]
  - Pain in extremity [Unknown]
  - Device deployment issue [Recovered/Resolved]
  - Implant site pain [Unknown]

NARRATIVE: CASE EVENT DATE: 20160829
